FAERS Safety Report 24271767 (Version 1)
Quarter: 2024Q3

REPORT INFORMATION
  Report Type: Spontaneous
  Country: US (occurrence: US)
  Receive Date: 20240902
  Receipt Date: 20240902
  Transmission Date: 20241017
  Serious: No
  Sender: BRISTOL MYERS SQUIBB
  Company Number: US-BRISTOL-MYERS SQUIBB COMPANY-2024-132693

PATIENT
  Age: 65 Year
  Sex: Female

DRUGS (2)
  1. AUGTYRO [Interacting]
     Active Substance: REPOTRECTINIB
     Indication: Product used for unknown indication
     Route: 048
  2. PAXLOVID [Interacting]
     Active Substance: NIRMATRELVIR\RITONAVIR
     Indication: COVID-19 immunisation

REACTIONS (7)
  - COVID-19 [Unknown]
  - Nausea [Unknown]
  - Brain fog [Unknown]
  - Somnolence [Unknown]
  - Vertigo [Unknown]
  - Balance disorder [Unknown]
  - Labelled drug-drug interaction issue [Unknown]

NARRATIVE: CASE EVENT DATE: 20240801
